FAERS Safety Report 6212859-6 (Version None)
Quarter: 2009Q2

REPORT INFORMATION
  Report Type: 
  Country: None (occurrence: None)
  Receive Date: 20090603
  Receipt Date: 20090520
  Transmission Date: 20091009
  Serious: No
  Sender: FDA-Public Use
  Company Number: PHHY2009JP18874

PATIENT
  Age: 60 Year
  Sex: Male

DRUGS (4)
  1. DIOVAN [Suspect]
     Indication: HYPERTENSION
     Dosage: 80 MG DAILY
     Route: 048
     Dates: start: 20060101
  2. NORVASC [Suspect]
     Dosage: 5 MG DAILY
     Route: 048
     Dates: start: 20060101
  3. ALDACTONE [Suspect]
     Dosage: 25 MG DAILY
     Route: 048
  4. DRUG THERAPY NOS [Concomitant]

REACTIONS (1)
  - LIMB DISCOMFORT [None]
